FAERS Safety Report 10915224 (Version 1)
Quarter: 2015Q1

REPORT INFORMATION
  Report Type: Spontaneous
  Country: US (occurrence: US)
  Receive Date: 20150316
  Receipt Date: 20150316
  Transmission Date: 20150721
  Serious: Yes (Other)
  Sender: FDA-Public Use
  Company Number: US-CIPLA LTD.-2015US01788

PATIENT

DRUGS (4)
  1. AMLODIPINE [Suspect]
     Active Substance: AMLODIPINE BESYLATE
  2. HYDRALAZINE [Suspect]
     Active Substance: HYDRALAZINE HYDROCHLORIDE
  3. IRBESARTAN. [Suspect]
     Active Substance: IRBESARTAN
  4. METOPROLOL [Suspect]
     Active Substance: METOPROLOL

REACTIONS (6)
  - Renin abnormal [Recovered/Resolved]
  - Treatment failure [Unknown]
  - Blood potassium abnormal [Recovered/Resolved]
  - Skin hyperpigmentation [Unknown]
  - Cardiac murmur [Recovered/Resolved]
  - Blood pressure increased [Recovered/Resolved]
